FAERS Safety Report 22624637 (Version 4)
Quarter: 2024Q2

REPORT INFORMATION
  Report Type: Spontaneous
  Country: NL (occurrence: NL)
  Receive Date: 20230621
  Receipt Date: 20240409
  Transmission Date: 20240716
  Serious: Yes (Life-Threatening, Hospitalization, Other)
  Sender: FDA-Public Use
  Company Number: NL-GLAXOSMITHKLINE-NL2023GSK078911

PATIENT
  Age: 48 Year
  Sex: Female

DRUGS (6)
  1. ARIPIPRAZOLE [Suspect]
     Active Substance: ARIPIPRAZOLE
     Indication: Suicide attempt
     Dosage: 630 MG
     Route: 048
  2. LORAZEPAM [Suspect]
     Active Substance: LORAZEPAM
     Indication: Suicide attempt
     Dosage: 21 MG
     Route: 048
  3. NORTRIPTYLINE [Suspect]
     Active Substance: NORTRIPTYLINE
     Indication: Suicide attempt
     Dosage: 3675 MG
     Route: 048
  4. TEMAZEPAM [Suspect]
     Active Substance: TEMAZEPAM
     Indication: Suicide attempt
     Dosage: 410 MG
     Route: 048
  5. LITHIUM [Suspect]
     Active Substance: LITHIUM
     Indication: Suicide attempt
     Dosage: 21 G
     Route: 048
  6. ACTIVATED CHARCOAL [Concomitant]
     Active Substance: ACTIVATED CHARCOAL
     Indication: Product used for unknown indication
     Dosage: UNK
     Route: 065

REACTIONS (9)
  - Electrocardiogram QRS complex prolonged [Recovered/Resolved]
  - Gastrointestinal motility disorder [Unknown]
  - Toxicity to various agents [Recovering/Resolving]
  - Toxicity to various agents [Unknown]
  - Suicide attempt [Recovered/Resolved]
  - Somnolence [Recovered/Resolved]
  - Vomiting [Unknown]
  - Intentional overdose [Recovering/Resolving]
  - Product use in unapproved indication [Unknown]
